FAERS Safety Report 5861331-1 (Version None)
Quarter: 2008Q3

REPORT INFORMATION
  Report Type: 
  Country: None (occurrence: None)
  Receive Date: 20080826
  Receipt Date: 20080815
  Transmission Date: 20090109
  Serious: Yes (Hospitalization)
  Sender: FDA-Public Use
  Company Number: 2008SP001864

PATIENT
  Age: 83 Year
  Sex: Female
  Weight: 43.2 kg

DRUGS (12)
  1. XOPENEX [Suspect]
     Indication: CHRONIC OBSTRUCTIVE PULMONARY DISEASE
     Dosage: ; INHALATION, ; INHALATION
     Route: 055
     Dates: start: 20080716, end: 20080726
  2. XOPENEX [Suspect]
     Indication: CHRONIC OBSTRUCTIVE PULMONARY DISEASE
     Dosage: ; INHALATION, ; INHALATION
     Route: 055
     Dates: start: 20080729, end: 20080804
  3. POTASSIUM CHLORIDE [Concomitant]
  4. LASIX [Concomitant]
  5. TOPROL-XL [Concomitant]
  6. LANOXIN [Concomitant]
  7. PROTONIX /01263201/ [Concomitant]
  8. MUCINEX [Concomitant]
  9. PREDNISONE TAB [Concomitant]
  10. OXYGEN [Concomitant]
  11. ALBUTEROL [Concomitant]
  12. PREV MEDS =UNKNOWN [Concomitant]

REACTIONS (3)
  - HEART RATE INCREASED [None]
  - PHARMACEUTICAL PRODUCT COMPLAINT [None]
  - PNEUMONIA [None]
